FAERS Safety Report 25729878 (Version 1)
Quarter: 2025Q3

REPORT INFORMATION
  Report Type: Spontaneous
  Country: KR (occurrence: KR)
  Receive Date: 20250827
  Receipt Date: 20250827
  Transmission Date: 20251020
  Serious: Yes (Other)
  Sender: RANBAXY
  Company Number: KR-SUN PHARMACEUTICAL INDUSTRIES LTD-2025RR-524683

PATIENT
  Age: 80 Year
  Sex: Female

DRUGS (5)
  1. SUNITINIB [Suspect]
     Active Substance: SUNITINIB
     Indication: Gastrointestinal stromal tumour
     Route: 048
  2. ISONIAZID [Suspect]
     Active Substance: ISONIAZID
     Indication: Tuberculosis of intrathoracic lymph nodes
     Route: 065
  3. PYRAZINAMIDE [Suspect]
     Active Substance: PYRAZINAMIDE
     Indication: Tuberculosis of intrathoracic lymph nodes
     Route: 065
  4. RIFAMPIN [Suspect]
     Active Substance: RIFAMPIN
     Indication: Tuberculosis of intrathoracic lymph nodes
     Route: 065
  5. ETHAMBUTOL [Suspect]
     Active Substance: ETHAMBUTOL HYDROCHLORIDE
     Indication: Tuberculosis of intrathoracic lymph nodes
     Route: 065

REACTIONS (7)
  - Hepatotoxicity [Unknown]
  - Liver function test increased [Unknown]
  - Thrombocytopenia [Unknown]
  - Vision blurred [Unknown]
  - Disease progression [Unknown]
  - Cytopenia [Unknown]
  - Tuberculosis [Unknown]
